FAERS Safety Report 7966073-4 (Version None)
Quarter: 2011Q4

REPORT INFORMATION
  Report Type: 
  Country: None (occurrence: None)
  Receive Date: 20111208
  Receipt Date: 20111202
  Transmission Date: 20120403
  Serious: Yes (Hospitalization)
  Sender: FDA-Public Use
  Company Number: DE-ABBOTT-11P-062-0855164-00

PATIENT
  Sex: Female

DRUGS (7)
  1. HUMIRA [Suspect]
  2. TILIDIN [Concomitant]
     Indication: PRODUCT USED FOR UNKNOWN INDICATION
  3. ACETAMINOPHEN [Concomitant]
     Indication: PRODUCT USED FOR UNKNOWN INDICATION
  4. LIVER DRUGS [Concomitant]
     Indication: PRODUCT USED FOR UNKNOWN INDICATION
  5. HUMIRA [Suspect]
     Indication: CROHN'S DISEASE
     Dates: start: 20100909
  6. CORTISONE ACETATE [Concomitant]
     Indication: PRODUCT USED FOR UNKNOWN INDICATION
  7. TRANQUILIZER [Concomitant]
     Indication: PRODUCT USED FOR UNKNOWN INDICATION

REACTIONS (9)
  - FOOD AVERSION [None]
  - MUSCULAR WEAKNESS [None]
  - GASTROINTESTINAL INFLAMMATION [None]
  - DECREASED APPETITE [None]
  - ENTEROCUTANEOUS FISTULA [None]
  - INTESTINAL STENOSIS [None]
  - FATIGUE [None]
  - WEIGHT DECREASED [None]
  - BONE PAIN [None]
